FAERS Safety Report 8442881 (Version 4)
Quarter: 2013Q2

REPORT INFORMATION
  Report Type: Report from Study
  Country: US (occurrence: US)
  Receive Date: 20120306
  Receipt Date: 20130402
  Transmission Date: 20140414
  Serious: Yes (Hospitalization)
  Sender: FDA-Public Use
  Company Number: US-ACTELION-A-US2012-61968

PATIENT
  Age: 52 Year
  Sex: Male

DRUGS (4)
  1. TRACLEER [Suspect]
     Indication: PULMONARY ARTERIAL HYPERTENSION
     Dosage: UNK
     Route: 048
  2. ASPIRIN [Concomitant]
  3. FUROSEMIDE [Concomitant]
  4. AMLODIPINE [Concomitant]

REACTIONS (9)
  - Computerised tomogram abnormal [Unknown]
  - Pulmonary hypertension [Unknown]
  - Dyspnoea [Unknown]
  - Upper limb fracture [Unknown]
  - Pulmonary oedema [Unknown]
  - Chest pain [Unknown]
  - Syncope [Unknown]
  - Oxygen consumption [Unknown]
  - Asthma [Recovered/Resolved]
